FAERS Safety Report 8031560-X (Version None)
Quarter: 2012Q1

REPORT INFORMATION
  Report Type: 
  Country: None (occurrence: None)
  Receive Date: 20120109
  Receipt Date: 20120104
  Transmission Date: 20120608
  Serious: Yes (Death)
  Sender: FDA-Public Use
  Company Number: US-CELGENEUS-163-21880-12010451

PATIENT
  Sex: Female

DRUGS (8)
  1. REBIF [Concomitant]
     Route: 065
  2. PREDNISONE TAB [Concomitant]
     Route: 065
  3. LOPRESSOR HCT [Concomitant]
     Route: 065
  4. VALCYTE [Concomitant]
     Route: 065
  5. BACTRIM [Concomitant]
     Route: 065
  6. REVLIMID [Suspect]
     Indication: LYMPHOMA
     Dosage: 5 MILLIGRAM
     Route: 048
     Dates: start: 20110604
  7. RITUXAN [Concomitant]
     Route: 065
  8. ACYCLOVIR [Concomitant]
     Route: 065

REACTIONS (1)
  - DEATH [None]
